FAERS Safety Report 8155817-7 (Version None)
Quarter: 2012Q1

REPORT INFORMATION
  Report Type: 
  Country: None (occurrence: None)
  Receive Date: 20120215
  Receipt Date: 20120131
  Transmission Date: 20120608
  Serious: Yes (Hospitalization)
  Sender: FDA-Public Use
  Company Number: TCI2011A06838

PATIENT
  Age: 74 Year
  Sex: Male

DRUGS (15)
  1. DIOVAN [Concomitant]
  2. GLUCOBAY [Concomitant]
  3. GLYBURIDE [Concomitant]
  4. AMARYL [Concomitant]
  5. SIGMART (MICORANDIL) [Concomitant]
  6. ACTOS [Suspect]
     Indication: DIABETES MELLITUS
     Dosage: 15;30 MG (15 MG, 1 IN 1 D), PER ORAL
     Route: 048
     Dates: start: 20080214, end: 20080312
  7. ACTOS [Suspect]
     Indication: DIABETES MELLITUS
     Dosage: 15;30 MG (15 MG, 1 IN 1 D), PER ORAL
     Route: 048
     Dates: start: 20090402, end: 20110310
  8. ACTOS [Suspect]
     Indication: DIABETES MELLITUS
     Dosage: 15;30 MG (15 MG, 1 IN 1 D), PER ORAL
     Route: 048
     Dates: start: 20080313, end: 20090401
  9. ASPIRIN [Concomitant]
  10. ESTAZOLAM [Concomitant]
  11. AMLODIPINE BESYLATE [Concomitant]
  12. MICARDIS [Concomitant]
  13. MEVALOTIN (PRAVASTATIN SODIUIM) [Concomitant]
  14. NATEGLINIDE [Concomitant]
  15. GLACTIVE (SITAGLIPTIN  PHOSPHATE) [Concomitant]

REACTIONS (1)
  - BLADDER TRANSITIONAL CELL CARCINOMA [None]
